FAERS Safety Report 18851987 (Version 1)
Quarter: 2021Q1

REPORT INFORMATION
  Report Type: Spontaneous
  Country: US (occurrence: US)
  Receive Date: 20210205
  Receipt Date: 20210205
  Transmission Date: 20210420
  Serious: Yes (Hospitalization)
  Sender: FDA-Public Use
  Company Number: None

PATIENT
  Age: 53 Year
  Sex: Female

DRUGS (22)
  1. OXYBUTYNIN. [Concomitant]
     Active Substance: OXYBUTYNIN CHLORIDE
     Dates: start: 20200528
  2. SUMATRIPTAN. [Concomitant]
     Active Substance: SUMATRIPTAN
     Dates: start: 20210128
  3. FAMOTIDINE. [Concomitant]
     Active Substance: FAMOTIDINE
     Dates: start: 20201203
  4. GLIMEPIRIDE. [Concomitant]
     Active Substance: GLIMEPIRIDE
     Dates: start: 20200815
  5. PT CHLORIDE [Concomitant]
     Dates: start: 20200906
  6. SPIRIVA [Concomitant]
     Active Substance: TIOTROPIUM BROMIDE MONOHYDRATE
     Dates: start: 20200820
  7. PLEGRIDY [Suspect]
     Active Substance: PEGINTERFERON BETA-1A
     Indication: MULTIPLE SCLEROSIS
     Dosage: ?          OTHER FREQUENCY:EVERY 14 DAYS;?
     Route: 058
     Dates: start: 20200429
  8. CLOPIDOGREL [Concomitant]
     Active Substance: CLOPIDOGREL BISULFATE
     Dates: start: 20200828
  9. NYSTOP [Concomitant]
     Active Substance: NYSTATIN
     Dates: start: 20201203
  10. LANTUS SOLOS [Concomitant]
     Dates: start: 20201207
  11. OMEPRAZOLE. [Concomitant]
     Active Substance: OMEPRAZOLE
     Dates: start: 20200817
  12. SUMATRIPTAN. [Concomitant]
     Active Substance: SUMATRIPTAN
     Dates: start: 20210121
  13. PRAVASTATIN. [Concomitant]
     Active Substance: PRAVASTATIN
     Dates: start: 20201216
  14. SPIRONOLACT [Concomitant]
     Active Substance: SPIRONOLACTONE
     Dates: start: 20201207
  15. GABAPENTIN. [Concomitant]
     Active Substance: GABAPENTIN
     Dates: start: 20201203
  16. NOVOLOG [Concomitant]
     Active Substance: INSULIN ASPART
     Dates: start: 20201218
  17. HYDROCORT CREAM [Concomitant]
     Dates: start: 20201120
  18. PRAMIPEXOLE. [Concomitant]
     Active Substance: PRAMIPEXOLE
     Dates: start: 20201201
  19. EMGALITY [Concomitant]
     Active Substance: GALCANEZUMAB-GNLM
     Dates: start: 20210122
  20. TIZANIDINE. [Concomitant]
     Active Substance: TIZANIDINE
     Dates: start: 20201120
  21. NICOTINE TD DIS [Concomitant]
     Dates: start: 20210120
  22. LIDOCAINE. [Concomitant]
     Active Substance: LIDOCAINE
     Dates: start: 20210120

REACTIONS (8)
  - Gait disturbance [None]
  - Sepsis [None]
  - Hypersensitivity [None]
  - Injection site reaction [None]
  - Blood magnesium abnormal [None]
  - Drug interaction [None]
  - Cellulitis [None]
  - Blood potassium abnormal [None]

NARRATIVE: CASE EVENT DATE: 20200601
